FAERS Safety Report 9665696 (Version 2)
Quarter: 2013Q4

REPORT INFORMATION
  Report Type: Report from Study
  Country: BR (occurrence: BR)
  Receive Date: 20131104
  Receipt Date: 20131219
  Transmission Date: 20140711
  Serious: Yes (Other)
  Sender: FDA-Public Use
  Company Number: PHHY2013BR124229

PATIENT
  Sex: Male
  Weight: 30 kg

DRUGS (1)
  1. RITALIN LA [Suspect]
     Indication: ATTENTION DEFICIT/HYPERACTIVITY DISORDER
     Dosage: 1 DF, DAILY
     Route: 048
     Dates: start: 2013

REACTIONS (4)
  - Autism [Recovering/Resolving]
  - Agitation [Recovering/Resolving]
  - Drug ineffective [Recovering/Resolving]
  - Drug administered to patient of inappropriate age [Unknown]
